FAERS Safety Report 9491253 (Version 1)
Quarter: 2013Q1

REPORT INFORMATION
  Report Type: Not Available
  Country: US (occurrence: US)
  Receive Date: 20120619
  Receipt Date: 20120619
  Transmission Date: 20140127
  Serious: Yes (Hospitalization)
  Sender: FDA-Public Use
  Company Number: US-LUNDBECK-DKLU1078140

PATIENT
  Sex: Male
  Weight: 22.5 kg

DRUGS (6)
  1. SABRIL     (TABLET) [Suspect]
     Indication: INFANTILE SPASMS
     Dosage: 2 (UNKNOWN UNIT OF MEASUREMENT)
     Route: 048
     Dates: start: 20120202
  2. SABRIL     (TABLET) [Suspect]
     Indication: ENCEPHALOPATHY
  3. BENZODIAZEPINE [Concomitant]
     Indication: PRODUCT USED FOR UNKNOWN INDICATION
  4. GABAPENTIN [Concomitant]
     Indication: PRODUCT USED FOR UNKNOWN INDICATION
  5. PHENYTOIN [Concomitant]
     Indication: PRODUCT USED FOR UNKNOWN INDICATION
  6. FELBAMATE [Concomitant]
     Indication: PRODUCT USED FOR UNKNOWN INDICATION

REACTIONS (1)
  - Hospitalisation [Unknown]
